FAERS Safety Report 14731601 (Version 2)
Quarter: 2018Q2

REPORT INFORMATION
  Report Type: Report from Study
  Country: IE (occurrence: IE)
  Receive Date: 20180407
  Receipt Date: 20180427
  Transmission Date: 20180711
  Serious: Yes (Death, Other)
  Sender: FDA-Public Use
  Company Number: IE-AMGEN-IRLSL2018025435

PATIENT
  Age: 81 Year
  Sex: Male

DRUGS (13)
  1. COLGOUT [Concomitant]
     Active Substance: COLCHICINE
     Dosage: 500 MCG, UNK
     Route: 050
  2. ASPIRIN. [Concomitant]
     Active Substance: ASPIRIN
     Dosage: 75 MG, QD
     Route: 050
  3. MAXOLON [Suspect]
     Active Substance: METOCLOPRAMIDE HYDROCHLORIDE
     Indication: ABDOMINAL DISCOMFORT
     Dosage: 10 MG, TID
     Route: 048
  4. CARDICOR [Concomitant]
     Active Substance: BISOPROLOL
     Dosage: 2.5 MG, QD
     Route: 050
  5. ZOTON [Concomitant]
     Active Substance: LANSOPRAZOLE
     Dosage: 30 MG, QD
     Route: 050
  6. MAXOLON [Suspect]
     Active Substance: METOCLOPRAMIDE HYDROCHLORIDE
     Indication: NAUSEA
  7. PLAVIX [Concomitant]
     Active Substance: CLOPIDOGREL BISULFATE
     Dosage: 75 MG, QD
     Route: 050
  8. EZETROL [Concomitant]
     Active Substance: EZETIMIBE
     Dosage: 10 MG, QHS
     Route: 050
  9. PANTOPRAZOLE [Concomitant]
     Active Substance: PANTOPRAZOLE
     Dosage: 40 MG, QD
     Route: 050
  10. ARANESP [Suspect]
     Active Substance: DARBEPOETIN ALFA
     Indication: CHRONIC KIDNEY DISEASE
     Dosage: 30 MCG, QMO
     Route: 058
     Dates: start: 20151030, end: 20180307
  11. BURINEX [Concomitant]
     Active Substance: BUMETANIDE
     Dosage: 1 MG, QD
     Route: 050
  12. COVERSYL [Concomitant]
     Active Substance: PERINDOPRIL
     Dosage: 2 MG, QD
     Route: 050
  13. LIPOSTAT [Concomitant]
     Active Substance: PRAVASTATIN SODIUM
     Dosage: 40 MG, QD
     Route: 050

REACTIONS (12)
  - Pain in extremity [Not Recovered/Not Resolved]
  - Gastric disorder [Not Recovered/Not Resolved]
  - Malaise [Not Recovered/Not Resolved]
  - Feeling abnormal [Not Recovered/Not Resolved]
  - Dysphagia [Not Recovered/Not Resolved]
  - Ulcer [Not Recovered/Not Resolved]
  - Dehydration [Not Recovered/Not Resolved]
  - Insomnia [Not Recovered/Not Resolved]
  - Nausea [Not Recovered/Not Resolved]
  - Gait disturbance [Recovering/Resolving]
  - Somnolence [Not Recovered/Not Resolved]
  - Death [Fatal]

NARRATIVE: CASE EVENT DATE: 2017
